FAERS Safety Report 17798311 (Version 2)
Quarter: 2020Q2

REPORT INFORMATION
  Report Type: Spontaneous
  Country: US (occurrence: US)
  Receive Date: 20200518
  Receipt Date: 20200518
  Transmission Date: 20200714
  Serious: Yes (Other)
  Sender: FDA-Public Use
  Company Number: US-PFIZER INC-2020192742

PATIENT
  Age: 58 Year
  Sex: Male

DRUGS (4)
  1. DOCETAXEL. [Suspect]
     Active Substance: DOCETAXEL
     Indication: SARCOMA
     Dosage: 75 MG/M2, CYCLIC (2 CYCLES)
     Dates: start: 201607, end: 201609
  2. GEMCITABINE HYDROCHLORIDE. [Suspect]
     Active Substance: GEMCITABINE HYDROCHLORIDE
     Indication: SARCOMA
     Dosage: 675 MG/M2, CYCLIC (2 CYCLES, SALVAGE CHEMOTHERAPY)
     Dates: start: 201607, end: 201609
  3. DOCETAXEL. [Suspect]
     Active Substance: DOCETAXEL
     Indication: SALVAGE THERAPY
  4. GEMCITABINE HYDROCHLORIDE. [Suspect]
     Active Substance: GEMCITABINE HYDROCHLORIDE
     Indication: SALVAGE THERAPY

REACTIONS (1)
  - Pneumonitis [Unknown]

NARRATIVE: CASE EVENT DATE: 2016
